FAERS Safety Report 9298272 (Version 1)
Quarter: 2013Q2

REPORT INFORMATION
  Report Type: Spontaneous
  Country: US (occurrence: US)
  Receive Date: 20130520
  Receipt Date: 20130520
  Transmission Date: 20140414
  Serious: Yes (Hospitalization)
  Sender: FDA-Public Use
  Company Number: US-ROCHE-1210221

PATIENT
  Age: 61 Year
  Sex: Female

DRUGS (4)
  1. PEGASYS [Suspect]
     Indication: CHRONIC HEPATITIS C
     Route: 058
     Dates: start: 20130122, end: 20130419
  2. RIBAVIRIN [Suspect]
     Indication: CHRONIC HEPATITIS C
     Dosage: 2 DIVIDED DOSES
     Route: 048
     Dates: start: 20130122
  3. RIBAVIRIN [Suspect]
     Dosage: DOSE REDUCED
     Route: 048
  4. TELAPREVIR [Suspect]
     Indication: CHRONIC HEPATITIS C
     Route: 065
     Dates: start: 20130122

REACTIONS (6)
  - Anaemia [Unknown]
  - Cardiac failure [Unknown]
  - Confusional state [Unknown]
  - Renal failure [Unknown]
  - Sepsis [Unknown]
  - Type 1 diabetes mellitus [Unknown]
